FAERS Safety Report 4547160-X (Version None)
Quarter: 2005Q1

REPORT INFORMATION
  Report Type: 
  Country: None (occurrence: None)
  Receive Date: 20050105
  Receipt Date: 20041228
  Transmission Date: 20050727
  Serious: Yes (Other)
  Sender: FDA-Public Use
  Company Number: US-JNJFOC-20041207014

PATIENT
  Age: 53 Year
  Sex: Male

DRUGS (2)
  1. PEPCID AC [Suspect]
     Indication: STOMACH DISCOMFORT
     Dosage: 10 MG, 2 IN 1 DAY, ORAL
     Route: 048
     Dates: start: 20041227, end: 20041227
  2. MVI (MULTIVITAMINS) [Concomitant]

REACTIONS (3)
  - HYPOAESTHESIA ORAL [None]
  - INSOMNIA [None]
  - PRURITUS GENERALISED [None]
